FAERS Safety Report 5075833-1 (Version None)
Quarter: 2006Q3

REPORT INFORMATION
  Report Type: 
  Country: None (occurrence: None)
  Receive Date: 20060807
  Receipt Date: 20060726
  Transmission Date: 20061208
  Serious: Yes (Hospitalization, Other)
  Sender: FDA-Public Use
  Company Number: 2006092685

PATIENT
  Age: 52 Year
  Sex: Female
  Weight: 117.9352 kg

DRUGS (6)
  1. GENOTROPIN [Suspect]
     Indication: DRUG USE FOR UNKNOWN INDICATION
     Dosage: EVERY DAY; 3 YEARS AGO - 05; SEE IMAGE
     Dates: end: 20050101
  2. GENOTROPIN [Suspect]
     Indication: DRUG USE FOR UNKNOWN INDICATION
     Dosage: EVERY DAY; 3 YEARS AGO - 05; SEE IMAGE
     Dates: start: 20060101
  3. MOBIC [Concomitant]
  4. VITAMIN B1 TAB [Concomitant]
  5. VITAMIN B12 [Concomitant]
  6. VITAMIN A (NATURAL) CAP [Concomitant]

REACTIONS (1)
  - OVARIAN CANCER [None]
